FAERS Safety Report 9515455 (Version 1)
Quarter: 2013Q3

REPORT INFORMATION
  Report Type: Spontaneous
  Country: US (occurrence: US)
  Receive Date: 20130911
  Receipt Date: 20130911
  Transmission Date: 20140515
  Serious: Yes (Other)
  Sender: FDA-Public Use
  Company Number: US-PFIZER INC-2013261176

PATIENT
  Age: 37 Year
  Sex: Female
  Weight: 65.76 kg

DRUGS (7)
  1. CHANTIX [Suspect]
     Indication: SMOKING CESSATION THERAPY
     Dosage: 0.5 MG, DAILY
     Route: 048
     Dates: start: 20130813, end: 20130815
  2. CHANTIX [Suspect]
     Dosage: 0.5 MG, 2X/DAY
     Route: 048
     Dates: start: 20130816, end: 20130819
  3. CHANTIX [Suspect]
     Dosage: 1 MG, 2X/DAY
     Route: 048
     Dates: start: 20130820, end: 20130907
  4. CHANTIX [Suspect]
     Dosage: UNK
     Dates: end: 20130907
  5. CELEXA [Suspect]
     Dosage: UNK
  6. XANAX [Concomitant]
     Indication: POST-TRAUMATIC STRESS DISORDER
     Dosage: 1 MG, AS NEEDED
  7. XANAX [Concomitant]
     Indication: PANIC ATTACK

REACTIONS (15)
  - Suicidal ideation [Unknown]
  - Depression [Not Recovered/Not Resolved]
  - Agitation [Not Recovered/Not Resolved]
  - Negative thoughts [Not Recovered/Not Resolved]
  - Feeling of despair [Unknown]
  - Thinking abnormal [Unknown]
  - Mood altered [Unknown]
  - Anger [Unknown]
  - Tearfulness [Unknown]
  - Bronchitis [Unknown]
  - Chest pain [Unknown]
  - Activities of daily living impaired [Unknown]
  - Abnormal dreams [Not Recovered/Not Resolved]
  - Nausea [Unknown]
  - Cough [Unknown]
